FAERS Safety Report 5945031-5 (Version None)
Quarter: 2008Q4

REPORT INFORMATION
  Report Type: 
  Country: None (occurrence: None)
  Receive Date: 20081107
  Receipt Date: 20081029
  Transmission Date: 20090506
  Serious: Yes (Hospitalization)
  Sender: FDA-Public Use
  Company Number: BR-JNJFOC-20081004982

PATIENT
  Sex: Female
  Weight: 77 kg

DRUGS (8)
  1. REMICADE [Suspect]
     Dosage: TOTAL OF 4 INFUSIONS ADMINISTERED
     Route: 042
  2. REMICADE [Suspect]
     Dosage: THIRD INFUSION ADMINISTERED ON AN UNKNOWN DATE
     Route: 042
  3. REMICADE [Suspect]
     Route: 042
  4. REMICADE [Suspect]
     Indication: ANKYLOSING SPONDYLITIS
     Dosage: FIRST 3 INFUSION ADMINISTERED ON UNKNOWN DATES
     Route: 042
  5. PREDNISONE TAB [Concomitant]
     Indication: ANKYLOSING SPONDYLITIS
     Route: 048
  6. MIANTREX [Concomitant]
     Indication: ANKYLOSING SPONDYLITIS
     Route: 030
  7. PROPRANOLOL [Concomitant]
     Indication: ANKYLOSING SPONDYLITIS
     Route: 048
  8. FOLIC ACID [Concomitant]
     Indication: ANKYLOSING SPONDYLITIS

REACTIONS (12)
  - APHTHOUS STOMATITIS [None]
  - CHEST PAIN [None]
  - CHOLELITHIASIS [None]
  - DRY MOUTH [None]
  - DYSENTERY [None]
  - EAR INFECTION [None]
  - GALLBLADDER DISORDER [None]
  - HYPERTENSION [None]
  - INFUSION RELATED REACTION [None]
  - NAUSEA [None]
  - RENAL COLIC [None]
  - TACHYCARDIA [None]
